FAERS Safety Report 10194276 (Version 2)
Quarter: 2014Q2

REPORT INFORMATION
  Report Type: Report from Study
  Country: CH (occurrence: CH)
  Receive Date: 20140526
  Receipt Date: 20140627
  Transmission Date: 20141212
  Serious: Yes (Other)
  Sender: FDA-Public Use
  Company Number: CH-ROCHE-1406449

PATIENT
  Age: 63 Year
  Sex: Female

DRUGS (1)
  1. RITUXIMAB [Suspect]
     Indication: B-CELL LYMPHOMA
     Dosage: LAST DOSE PRIOR TO EVENT ON 15/SEP/2012
     Route: 042
     Dates: start: 20051207, end: 20120915

REACTIONS (1)
  - Diffuse large B-cell lymphoma [Not Recovered/Not Resolved]
